FAERS Safety Report 4778777-5 (Version None)
Quarter: 2005Q3

REPORT INFORMATION
  Report Type: 
  Country: None (occurrence: None)
  Receive Date: 20050922
  Receipt Date: 20050915
  Transmission Date: 20060218
  Serious: Yes (Other)
  Sender: FDA-Public Use
  Company Number: SE-2005-019328

PATIENT
  Age: 52 Year
  Sex: Female

DRUGS (2)
  1. LEVONORGESTREL [Suspect]
     Indication: MENOPAUSAL SYMPTOMS
     Dosage: 20 UG/DAY, CONT, INTRA-UTERINE
     Route: 015
  2. ESTRADOT (ESTRADIOL) PATCH [Suspect]
     Indication: MENOPAUSAL SYMPTOMS
     Dosage: 50 UG/DAY, CONT, TRANSDERMAL
     Route: 062
     Dates: start: 20020101

REACTIONS (1)
  - BREAST CANCER FEMALE [None]
